FAERS Safety Report 6601859-X (Version None)
Quarter: 2010Q1

REPORT INFORMATION
  Report Type: 
  Country: None (occurrence: None)
  Receive Date: 20100225
  Receipt Date: 20100219
  Transmission Date: 20100710
  Serious: Yes (Other)
  Sender: FDA-Public Use
  Company Number: FR-KINGPHARMUSA00001-K201000001

PATIENT
  Sex: Male

DRUGS (5)
  1. INTAL [Suspect]
     Indication: HYPOSMIA
     Dosage: QID
     Route: 045
     Dates: start: 20090903, end: 20090904
  2. AZUNOL [Concomitant]
     Dosage: UNK
     Dates: start: 20090903, end: 20090904
  3. MEIACT [Concomitant]
     Indication: NEOPLASM SKIN
     Dosage: 300 MG, QD
     Dates: start: 20090821
  4. ISODINE [Concomitant]
     Indication: NEOPLASM SKIN
     Dosage: UNK
     Dates: start: 20090821
  5. ACHROMYCIN [Concomitant]
     Indication: NEOPLASM SKIN
     Dosage: UNK
     Dates: start: 20090821

REACTIONS (2)
  - DIZZINESS [None]
  - HALLUCINATION [None]
